FAERS Safety Report 18541386 (Version 5)
Quarter: 2021Q2

REPORT INFORMATION
  Report Type: Spontaneous
  Country: JP (occurrence: JP)
  Receive Date: 20201124
  Receipt Date: 20210407
  Transmission Date: 20210717
  Serious: Yes (Life-Threatening, Hospitalization, Other)
  Sender: FDA-Public Use
  Company Number: JP-DSJP-DSJ-2020-135397

PATIENT
  Age: 60 Year
  Sex: Male
  Weight: 54 kg

DRUGS (6)
  1. FENTOS [Concomitant]
     Active Substance: FENTANYL
     Indication: CANCER PAIN
     Dosage: 2 MG, QD
     Dates: start: 20201022
  2. ATELEC [Concomitant]
     Active Substance: CILNIDIPINE
     Indication: HYPERTENSION
     Dosage: 10 MG, QD
     Route: 048
  3. FENTOS [Concomitant]
     Active Substance: FENTANYL
     Dosage: 1 MG, QD
     Dates: start: 20201022
  4. ENHERTU [Suspect]
     Active Substance: FAM-TRASTUZUMAB DERUXTECAN-NXKI
     Indication: HER2 POSITIVE GASTRIC CANCER
     Dosage: 350 MG, ONCE EVERY 3 WK
     Route: 041
     Dates: start: 20201019, end: 20201111
  5. ENHERTU [Suspect]
     Active Substance: FAM-TRASTUZUMAB DERUXTECAN-NXKI
     Indication: ADENOCARCINOMA GASTRIC
     Dosage: 220 MG, ONCE EVERY 3 WK
     Route: 041
     Dates: start: 20201217, end: 20210217
  6. TAKECAB [Concomitant]
     Active Substance: VONOPRAZAN FUMARATE
     Indication: HAEMORRHAGE PROPHYLAXIS
     Dosage: 10 MG, QD
     Route: 048
     Dates: start: 20190829

REACTIONS (3)
  - Upper gastrointestinal haemorrhage [Recovering/Resolving]
  - Vascular pseudoaneurysm [Not Recovered/Not Resolved]
  - Upper gastrointestinal haemorrhage [Recovering/Resolving]

NARRATIVE: CASE EVENT DATE: 20201117
